FAERS Safety Report 24197035 (Version 1)
Quarter: 2024Q3

REPORT INFORMATION
  Report Type: Spontaneous
  Country: CN (occurrence: CN)
  Receive Date: 20240810
  Receipt Date: 20240810
  Transmission Date: 20241016
  Serious: Yes (Death, Other)
  Sender: BIOCON
  Company Number: CN-BIOCON BIOLOGICS LIMITED-BBL2024005755

PATIENT

DRUGS (2)
  1. INSULIN HUMAN [Suspect]
     Active Substance: INSULIN HUMAN
     Indication: Diabetes mellitus
     Dosage: 14 UNIT (POSTOPERATIVE FASTING PERIOD) ADMINISTERED AT RIGHT CUBITAL FOSSA, RIGHT HAND
     Route: 042
  2. INSULIN HUMAN [Suspect]
     Active Substance: INSULIN HUMAN
     Dosage: 14 UNIT (POSTOPERATIVE FASTING PERIOD) ADMINISTERED AT RIGHT CUBITAL FOSSA, RIGHT HAND
     Route: 058

REACTIONS (1)
  - Accidental overdose [Fatal]
